FAERS Safety Report 25929831 (Version 1)
Quarter: 2025Q4

REPORT INFORMATION
  Report Type: Spontaneous
  Country: US (occurrence: None)
  Receive Date: 20251015
  Receipt Date: 20251015
  Transmission Date: 20260118
  Serious: Yes (Other)
  Sender: FDA-CTU
  Company Number: None

PATIENT
  Age: 71 Year
  Sex: Female
  Weight: 95.25 kg

DRUGS (18)
  1. ALENDRONATE SODIUM [Suspect]
     Active Substance: ALENDRONATE SODIUM
     Indication: Bone disorder
     Dosage: 1 PILL WEEKLY  1 X WK MOUTH??PST DOSE 1 WEEK?2ND DOSE  2 WEEKS?
     Route: 048
     Dates: start: 20250906, end: 20250920
  2. LOSARTAN POTASSIUM [Concomitant]
     Active Substance: LOSARTAN POTASSIUM
  3. Piltiazen [Concomitant]
  4. OXYBUTYNIN [Concomitant]
     Active Substance: OXYBUTYNIN
  5. SPIRONOLACTONE [Concomitant]
     Active Substance: SPIRONOLACTONE
  6. ROSUVASTATIN CALCIUM [Concomitant]
     Active Substance: ROSUVASTATIN CALCIUM
  7. GABAPENTIN [Concomitant]
     Active Substance: GABAPENTIN
  8. DULOXETINE [Concomitant]
     Active Substance: DULOXETINE
  9. Tranadol [Concomitant]
  10. DICLOFENAC [Concomitant]
     Active Substance: DICLOFENAC
  11. Multi Alive 50+ [Concomitant]
  12. LYSINE [Concomitant]
     Active Substance: LYSINE
  13. Calcium + Magnesium w/D3 + Zinc [Concomitant]
  14. MSM Joint Formula [Concomitant]
  15. Biotin + Collagen [Concomitant]
  16. Flex seed oil [Concomitant]
  17. PROBIOTICS NOS [Suspect]
     Active Substance: PROBIOTICS NOS
  18. Liver Aid [Concomitant]
     Dates: start: 20250906, end: 20250920

REACTIONS (9)
  - Feeling abnormal [None]
  - Pain in extremity [None]
  - Arthralgia [None]
  - Pain in extremity [None]
  - Therapy interrupted [None]
  - Therapy change [None]
  - Incorrect dose administered [None]
  - Joint lock [None]
  - Peripheral swelling [None]

NARRATIVE: CASE EVENT DATE: 20250906
